FAERS Safety Report 11074054 (Version 2)
Quarter: 2015Q2

REPORT INFORMATION
  Report Type: Spontaneous
  Country: US (occurrence: US)
  Receive Date: 20150429
  Receipt Date: 20150605
  Transmission Date: 20150821
  Serious: Yes (Other)
  Sender: FDA-Public Use
  Company Number: US-BEH-2015050539

PATIENT
  Age: 9 Year
  Sex: Male
  Weight: 13.4 kg

DRUGS (3)
  1. HIZENTRA [Suspect]
     Active Substance: HUMAN IMMUNOGLOBULIN G
     Dosage: 4 GM 20ML(606MG/KG/MONTH) Q2 WEEKS;1-2 INFUSION SITES;DURATION OF LAST INFUSIONS1.5 HR TO 1HR 45 MIN
     Route: 058
     Dates: start: 20150321
  2. HIZENTRA [Suspect]
     Active Substance: HUMAN IMMUNOGLOBULIN G
     Indication: IMMUNODEFICIENCY COMMON VARIABLE
     Dosage: 4 GM 20ML(606MG/KG/MONTH) Q2 WEEKS;1-2 INFUSION SITES;DURATION OF LAST INFUSIONS1.5 HR TO 1HR 45 MIN
     Route: 058
     Dates: start: 20130920
  3. LMX [Concomitant]
     Active Substance: LIDOCAINE
     Indication: PREMEDICATION

REACTIONS (4)
  - Administration site ulcer [Recovering/Resolving]
  - Wound drainage [Recovered/Resolved]
  - Wound [Recovering/Resolving]
  - Administration site ulcer [Recovered/Resolved]

NARRATIVE: CASE EVENT DATE: 20150307
